FAERS Safety Report 24157636 (Version 5)
Quarter: 2024Q4

REPORT INFORMATION
  Report Type: Spontaneous
  Country: ES (occurrence: ES)
  Receive Date: 20240731
  Receipt Date: 20241121
  Transmission Date: 20250115
  Serious: Yes (Hospitalization, Other)
  Sender: CHIESI
  Company Number: ES-CHIESI-2024CHF04586

PATIENT
  Age: 0 Year
  Sex: Female

DRUGS (2)
  1. CUROSURF [Suspect]
     Active Substance: PORACTANT ALFA
     Indication: Product used for unknown indication
     Dosage: 240 MILLIGRAM
     Route: 007
     Dates: start: 20240712
  2. CUROSURF [Suspect]
     Active Substance: PORACTANT ALFA
     Dosage: 120 MILLIGRAM
     Route: 007
     Dates: start: 20240713, end: 20240713

REACTIONS (4)
  - Dyspnoea [Unknown]
  - Pneumonia [Recovered/Resolved with Sequelae]
  - Product complaint [Recovered/Resolved]
  - Off label use [Recovered/Resolved]

NARRATIVE: CASE EVENT DATE: 20240712
